FAERS Safety Report 4844557-5 (Version None)
Quarter: 2005Q4

REPORT INFORMATION
  Report Type: 
  Country: None (occurrence: None)
  Receive Date: 20051130
  Receipt Date: 20051130
  Transmission Date: 20060501
  Serious: No
  Sender: FDA-Public Use
  Company Number: None

PATIENT
  Age: 82 Year
  Sex: Male
  Weight: 73.48 kg

DRUGS (2)
  1. LACTATED RINGER'S [Suspect]
     Indication: CYSTOGRAM
     Dosage: 1000ML X 1 IV CONT
     Route: 042
     Dates: start: 20051129
  2. LACTATED RINGER'S [Suspect]

REACTIONS (2)
  - INFUSION SITE PAIN [None]
  - PHARMACEUTICAL PRODUCT COMPLAINT [None]
